FAERS Safety Report 7772849-9 (Version None)
Quarter: 2011Q3

REPORT INFORMATION
  Report Type: 
  Country: None (occurrence: None)
  Receive Date: 20110922
  Receipt Date: 20110224
  Transmission Date: 20111222
  Serious: No
  Sender: FDA-Public Use
  Company Number: US-ASTRAZENECA-2011SE10800

PATIENT
  Age: 53 Year
  Sex: Female

DRUGS (2)
  1. NICORETTE [Concomitant]
  2. SEROQUEL XR [Suspect]
     Indication: ILL-DEFINED DISORDER
     Route: 048

REACTIONS (2)
  - ALOPECIA [None]
  - WEIGHT INCREASED [None]
